FAERS Safety Report 10243464 (Version 3)
Quarter: 2014Q3

REPORT INFORMATION
  Report Type: Spontaneous
  Country: JP (occurrence: None)
  Receive Date: 20140616
  Receipt Date: 20140825
  Transmission Date: 20150326
  Serious: Yes (Hospitalization)
  Sender: FDA-Public Use
  Company Number: 2014JP010475

PATIENT
  Age: 64 Year
  Sex: Male
  Weight: 69 kg

DRUGS (16)
  1. DEXAMETHASONE (DEXAMETHASONE) [Suspect]
     Active Substance: DEXAMETHASONE
     Indication: PROPHYLAXIS OF NAUSEA AND VOMITING
     Route: 048
     Dates: start: 20140529, end: 20140531
  2. MYSLEE (ZOLPIDEM TARTRATE) [Concomitant]
  3. LIPITOR [Concomitant]
     Active Substance: ATORVASTATIN CALCIUM
  4. ALIMTA [Suspect]
     Active Substance: PEMETREXED DISODIUM
     Indication: LUNG NEOPLASM MALIGNANT
     Route: 041
     Dates: start: 20140528, end: 20140528
  5. PARIET (RABEPROZOLE SODIUM) [Concomitant]
  6. ALOXI [Suspect]
     Active Substance: PALONOSETRON HYDROCHLORIDE
     Indication: PROPHYLAXIS OF NAUSEA AND VOMITING
     Dosage: 0.75 MG, SINGLE, INTRAVENOUS
     Route: 042
     Dates: start: 20140528, end: 20140528
  7. MAGLAX (MAGNESIUM OXIDE) [Concomitant]
     Active Substance: MAGNESIUM OXIDE
  8. LAXOBERON (SODIUM PICOSULFATE) [Concomitant]
     Active Substance: SODIUM PICOSULFATE
  9. DEXAMETHASONE. [Suspect]
     Active Substance: DEXAMETHASONE
     Indication: PROPHYLAXIS OF NAUSEA AND VOMITING
     Route: 041
     Dates: start: 20140528, end: 20140528
  10. PANVITAN (VITAMINS NOS) [Concomitant]
  11. AVASTIN [Suspect]
     Active Substance: BEVACIZUMAB
     Indication: LUNG NEOPLASM MALIGNANT
     Route: 041
     Dates: start: 20140528, end: 20140528
  12. CALONAL (PARACETAMOL) [Concomitant]
  13. CISPLATIN (CISPLATIN) [Suspect]
     Active Substance: CISPLATIN
     Indication: LUNG NEOPLASM MALIGNANT
     Route: 041
     Dates: start: 20140528, end: 20140528
  14. AMITIZA [Concomitant]
     Active Substance: LUBIPROSTONE
  15. YODEL (SENNA ALEXANDRINA) [Concomitant]
  16. NETUPITANT [Suspect]
     Active Substance: NETUPITANT
     Indication: PROPHYLAXIS OF NAUSEA AND VOMITING
     Dosage: 3 DF, SINGLE, ORAL
     Route: 048
     Dates: start: 20140528, end: 20140528

REACTIONS (4)
  - Constipation [None]
  - Abdominal distension [None]
  - Pancreatitis acute [None]
  - Back pain [None]

NARRATIVE: CASE EVENT DATE: 20140603
